FAERS Safety Report 17169175 (Version 1)
Quarter: 2019Q4

REPORT INFORMATION
  Report Type: Spontaneous
  Country: US (occurrence: US)
  Receive Date: 20191217
  Receipt Date: 20191217
  Transmission Date: 20200122
  Serious: Yes (Other)
  Sender: FDA-Public Use
  Company Number: None

PATIENT
  Age: 24 Year
  Sex: Female

DRUGS (3)
  1. VRAYLAR [Suspect]
     Active Substance: CARIPRAZINE
     Indication: SCHIZOAFFECTIVE DISORDER
     Route: 048
     Dates: start: 20191205, end: 20191212
  2. VRAYLAR [Suspect]
     Active Substance: CARIPRAZINE
     Indication: MANIA
     Route: 048
     Dates: start: 20191205, end: 20191212
  3. VRAYLAR [Suspect]
     Active Substance: CARIPRAZINE
     Indication: BIPOLAR DISORDER
     Route: 048
     Dates: start: 20191205, end: 20191212

REACTIONS (1)
  - Dystonia [None]

NARRATIVE: CASE EVENT DATE: 20191212
